FAERS Safety Report 5312151-8 (Version None)
Quarter: 2007Q2

REPORT INFORMATION
  Report Type: 
  Country: None (occurrence: None)
  Receive Date: 20070430
  Receipt Date: 20060905
  Transmission Date: 20071010
  Serious: No
  Sender: FDA-Public Use
  Company Number: 2006UW17429

PATIENT
  Sex: Male

DRUGS (2)
  1. NEXIUM [Suspect]
     Route: 048
  2. ADVAIR DISKUS 100/50 [Concomitant]
     Route: 055

REACTIONS (2)
  - DEPRESSED MOOD [None]
  - NERVOUSNESS [None]
